FAERS Safety Report 10736190 (Version 1)
Quarter: 2015Q1

REPORT INFORMATION
  Report Type: Spontaneous
  Country: US (occurrence: US)
  Receive Date: 20150126
  Receipt Date: 20150126
  Transmission Date: 20150721
  Serious: No
  Sender: FDA-Public Use
  Company Number: US-SHIRE-US201500546

PATIENT
  Sex: Female
  Weight: 17.23 kg

DRUGS (1)
  1. VYVANSE [Suspect]
     Active Substance: LISDEXAMFETAMINE DIMESYLATE
     Indication: ATTENTION DEFICIT/HYPERACTIVITY DISORDER
     Dosage: UNK UNK (LOWEST STRENGTH), OTHER (DAILY ON SCHOOL DAYS)
     Route: 048
     Dates: start: 201411

REACTIONS (5)
  - Wrong technique in drug usage process [Unknown]
  - Treatment noncompliance [Not Recovered/Not Resolved]
  - Oral administration complication [Unknown]
  - Product use issue [Not Recovered/Not Resolved]
  - Product quality issue [Unknown]

NARRATIVE: CASE EVENT DATE: 2014
